FAERS Safety Report 7088147-5 (Version None)
Quarter: 2010Q4

REPORT INFORMATION
  Report Type: 
  Country: None (occurrence: None)
  Receive Date: 20101108
  Receipt Date: 20101102
  Transmission Date: 20110411
  Serious: Yes (Other)
  Sender: FDA-Public Use
  Company Number: PT-EISAI INC.-E2090-01385-SPO-PT

PATIENT
  Age: 5 Year
  Sex: Male

DRUGS (4)
  1. ZONEGRAN [Suspect]
     Route: 048
     Dates: start: 20100928, end: 20101004
  2. ZONEGRAN [Suspect]
     Route: 048
     Dates: start: 20101005, end: 20101011
  3. ZONEGRAN [Suspect]
     Route: 048
     Dates: start: 20101012, end: 20101024
  4. LEVETIRACETAM [Concomitant]
     Route: 048

REACTIONS (5)
  - DIARRHOEA [None]
  - OEDEMA PERIPHERAL [None]
  - RASH [None]
  - STEVENS-JOHNSON SYNDROME [None]
  - VOMITING [None]
